FAERS Safety Report 10738066 (Version 3)
Quarter: 2015Q1

REPORT INFORMATION
  Report Type: Spontaneous
  Country: US (occurrence: US)
  Receive Date: 20150126
  Receipt Date: 20150312
  Transmission Date: 20150721
  Serious: Yes (Hospitalization)
  Sender: FDA-Public Use
  Company Number: US-UNITED THERAPEUTICS-UNT-2015-000594

PATIENT
  Age: 66 Year
  Sex: Female
  Weight: 96.28 kg

DRUGS (2)
  1. REMODULIN [Suspect]
     Active Substance: TREPROSTINIL
     Indication: PULMONARY HYPERTENSION
     Dosage: 0.0075 ?G/KG, CONTINUING
     Route: 041
     Dates: start: 20150115
  2. REMODULIN [Suspect]
     Active Substance: TREPROSTINIL
     Dosage: 0.01187 ?G/KG, CONTINUING
     Route: 041

REACTIONS (5)
  - Device leakage [Unknown]
  - Drug dose omission [Unknown]
  - Dyspnoea [Unknown]
  - Syncope [Unknown]
  - Injection site discharge [Unknown]

NARRATIVE: CASE EVENT DATE: 201501
